FAERS Safety Report 4860336-7 (Version None)
Quarter: 2005Q4

REPORT INFORMATION
  Report Type: 
  Country: None (occurrence: None)
  Receive Date: 20051215
  Receipt Date: 20051207
  Transmission Date: 20060501
  Serious: Yes (Hospitalization)
  Sender: FDA-Public Use
  Company Number: 2005BI006504

PATIENT
  Age: 53 Year
  Sex: Female

DRUGS (7)
  1. AVONEX [Suspect]
     Indication: MULTIPLE SCLEROSIS
     Dosage: 30 UG; QW; IM
     Route: 030
     Dates: start: 20020103, end: 20040205
  2. AVONEX [Suspect]
     Indication: MULTIPLE SCLEROSIS
     Dosage: 30 UG; QW; IM
     Route: 030
     Dates: start: 20040310
  3. BACLOFEN [Concomitant]
  4. ZANAFLEX [Concomitant]
  5. SOMA [Concomitant]
  6. NEURONTIN [Concomitant]
  7. AMITRIPTYLINE [Concomitant]

REACTIONS (3)
  - CARDIAC FAILURE CONGESTIVE [None]
  - HAEMORRHAGE [None]
  - PNEUMONIA ASPIRATION [None]
